FAERS Safety Report 4431195-1 (Version None)
Quarter: 2004Q3

REPORT INFORMATION
  Report Type: 
  Country: None (occurrence: None)
  Receive Date: 20040824
  Receipt Date: 20040812
  Transmission Date: 20050211
  Serious: Yes (Death, Hospitalization)
  Sender: FDA-Public Use
  Company Number: US-BRISTOL-MYERS SQUIBB COMPANY-12673257

PATIENT
  Age: 58 Year
  Sex: Female

DRUGS (3)
  1. ERBITUX [Suspect]
     Indication: COLORECTAL CANCER
     Route: 041
     Dates: start: 20040616
  2. IRINOTECAN [Suspect]
     Indication: COLORECTAL CANCER
     Route: 042
  3. LOPERAMIDE HCL [Concomitant]
     Dosage: AFTER START OF IRINOT. TREATM.-WHEN IRINOT. TREATM. FINISHED 1 TABLET AFTER EACH STOOL

REACTIONS (4)
  - CEREBRAL INFARCTION [None]
  - CONFUSIONAL STATE [None]
  - METASTASES TO CENTRAL NERVOUS SYSTEM [None]
  - POST PROCEDURAL COMPLICATION [None]
